FAERS Safety Report 21877010 (Version 1)
Quarter: 2023Q1

REPORT INFORMATION
  Report Type: Report from Study
  Country: US (occurrence: US)
  Receive Date: 20230118
  Receipt Date: 20230118
  Transmission Date: 20230418
  Serious: Yes (Hospitalization)
  Sender: FDA-Public Use
  Company Number: US-ABBVIE-4272513

PATIENT
  Age: 66 Year
  Sex: Female

DRUGS (3)
  1. SKYRIZI [Suspect]
     Active Substance: RISANKIZUMAB-RZAA
     Indication: Psoriasis
     Dosage: WEEK 0?ONE IN ONCE?FORM STRENGTH 150 MILLIGRAM
     Route: 058
  2. SKYRIZI [Suspect]
     Active Substance: RISANKIZUMAB-RZAA
     Dosage: FORM STRENGTH 150 MILLIGRAM?WEEK 4?ONE IN ONCE
     Route: 058
  3. SKYRIZI [Suspect]
     Active Substance: RISANKIZUMAB-RZAA
     Dosage: FORM STRENGTH 150 MILLIGRAM
     Route: 058

REACTIONS (6)
  - Influenza [Unknown]
  - Skin disorder [Unknown]
  - Pneumonia [Unknown]
  - Erythema [Not Recovered/Not Resolved]
  - Therapeutic product effect decreased [Unknown]
  - Oxygen saturation decreased [Unknown]

NARRATIVE: CASE EVENT DATE: 20201101
